FAERS Safety Report 8080300-7 (Version None)
Quarter: 2012Q1

REPORT INFORMATION
  Report Type: 
  Country: None (occurrence: None)
  Receive Date: 20120130
  Receipt Date: 20120124
  Transmission Date: 20120608
  Serious: Yes (Hospitalization, Other)
  Sender: FDA-Public Use
  Company Number: NL-JNJFOC-20111209827

PATIENT
  Sex: Female
  Weight: 42 kg

DRUGS (30)
  1. DOXORUBICIN HCL [Suspect]
     Route: 042
  2. RITUXIMAB [Suspect]
     Route: 042
  3. CYCLOPHOSPHAMIDE [Suspect]
     Route: 042
     Dates: start: 20111018
  4. NEUPOGEN [Suspect]
     Route: 058
  5. PREDNISONE TAB [Suspect]
     Indication: DIFFUSE LARGE B-CELL LYMPHOMA
     Route: 048
     Dates: start: 20111024
  6. CYCLOPHOSPHAMIDE [Suspect]
     Indication: DIFFUSE LARGE B-CELL LYMPHOMA
     Route: 042
  7. VINCRISTINE [Suspect]
     Route: 042
  8. VINCRISTINE [Suspect]
     Route: 042
  9. VALACICLOVIR [Concomitant]
     Route: 065
     Dates: start: 20110901
  10. DOXORUBICIN HCL [Suspect]
     Route: 042
     Dates: start: 20111018
  11. RITUXIMAB [Suspect]
     Indication: DIFFUSE LARGE B-CELL LYMPHOMA
     Route: 042
     Dates: start: 20111018
  12. PREDNISONE TAB [Suspect]
     Route: 048
     Dates: start: 20111018, end: 20111021
  13. NOVOLOG MIX 70/30 [Concomitant]
     Route: 065
     Dates: start: 20110923
  14. METFFORMIN HYDROCHLORIDE [Concomitant]
     Route: 065
     Dates: start: 20110908
  15. DOXORUBICIN HCL [Suspect]
     Indication: DIFFUSE LARGE B-CELL LYMPHOMA
     Route: 042
  16. DOXORUBICIN HCL [Suspect]
     Route: 042
  17. PREDNISONE TAB [Suspect]
     Route: 048
     Dates: start: 20111022, end: 20111022
  18. CYCLOPHOSPHAMIDE [Suspect]
     Route: 042
  19. VINCRISTINE [Suspect]
     Route: 042
  20. NEUPOGEN [Suspect]
     Indication: DIFFUSE LARGE B-CELL LYMPHOMA
     Route: 058
  21. NEUPOGEN [Suspect]
     Route: 058
  22. RITUXIMAB [Suspect]
     Route: 042
  23. RITUXIMAB [Suspect]
     Route: 042
  24. NEUPOGEN [Suspect]
     Route: 058
     Dates: start: 20111018
  25. COTRIM [Concomitant]
     Route: 065
     Dates: start: 20110901
  26. CARBASALATE [Suspect]
     Indication: TRANSIENT ISCHAEMIC ATTACK
     Route: 048
     Dates: start: 20000101
  27. PREDNISONE TAB [Suspect]
     Route: 048
     Dates: start: 20111023, end: 20111023
  28. CYCLOPHOSPHAMIDE [Suspect]
     Route: 042
  29. VINCRISTINE [Suspect]
     Indication: DIFFUSE LARGE B-CELL LYMPHOMA
     Route: 042
     Dates: start: 20111018
  30. ESOMEPRAZOLE SODIUM [Concomitant]
     Route: 065
     Dates: start: 20090101

REACTIONS (2)
  - ANAEMIA [None]
  - HAEMORRHOIDS [None]
